FAERS Safety Report 5993422-9 (Version None)
Quarter: 2008Q4

REPORT INFORMATION
  Report Type: 
  Country: None (occurrence: None)
  Receive Date: 20081212
  Receipt Date: 20081104
  Transmission Date: 20090506
  Serious: No
  Sender: FDA-Public Use
  Company Number: US-BAYER-200838426NA

PATIENT
  Sex: Female

DRUGS (1)
  1. MIRENA [Suspect]
     Indication: DRUG USE FOR UNKNOWN INDICATION
     Route: 015
     Dates: start: 20080930, end: 20081020

REACTIONS (7)
  - ABDOMINAL DISTENSION [None]
  - ACNE [None]
  - BACK PAIN [None]
  - BREAST PAIN [None]
  - LIBIDO DECREASED [None]
  - MOOD SWINGS [None]
  - WEIGHT INCREASED [None]
